FAERS Safety Report 25281604 (Version 1)
Quarter: 2025Q2

REPORT INFORMATION
  Report Type: Spontaneous
  Country: KP (occurrence: KP)
  Receive Date: 20250508
  Receipt Date: 20250508
  Transmission Date: 20250717
  Serious: Yes (Hospitalization, Other)
  Sender: AZURITY PHARMACEUTICALS
  Company Number: KP-AZURITY PHARMACEUTICALS, INC.-AZR202504-001238

PATIENT
  Age: 46 Year
  Sex: Female
  Weight: 80 kg

DRUGS (4)
  1. TOPIRAMATE [Interacting]
     Active Substance: TOPIRAMATE
     Indication: Obesity
     Route: 065
  2. PHENTERMINE [Interacting]
     Active Substance: PHENTERMINE
     Indication: Obesity
     Route: 065
  3. FLUOXETINE [Interacting]
     Active Substance: FLUOXETINE HYDROCHLORIDE
     Indication: Depression
     Route: 065
  4. CHLORTHALIDONE [Suspect]
     Active Substance: CHLORTHALIDONE
     Indication: Obesity
     Route: 065

REACTIONS (7)
  - Serotonin syndrome [Recovered/Resolved]
  - Rhabdomyolysis [Recovered/Resolved]
  - Renal failure [Recovered/Resolved]
  - Respiratory failure [Recovered/Resolved]
  - Pulmonary embolism [Recovered/Resolved]
  - Stress cardiomyopathy [Recovered/Resolved]
  - Drug interaction [Unknown]
